FAERS Safety Report 24626712 (Version 2)
Quarter: 2024Q4

REPORT INFORMATION
  Report Type: Report from Study
  Country: US (occurrence: US)
  Receive Date: 20241115
  Receipt Date: 20241220
  Transmission Date: 20250115
  Serious: Yes (Other)
  Sender: TAIHO ONCOLOGY INC
  Company Number: US-TAIHOP-2023-001810

PATIENT
  Age: 75 Year
  Sex: Male

DRUGS (15)
  1. LONSURF [Suspect]
     Active Substance: TIPIRACIL HYDROCHLORIDE\TRIFLURIDINE
     Indication: Colon cancer
     Dosage: CYCLE 1 STARTED ON 17/FEB/2023, CURRENT CYCLE UNKNOWN
     Route: 048
     Dates: start: 20230217
  2. LONSURF [Suspect]
     Active Substance: TIPIRACIL HYDROCHLORIDE\TRIFLURIDINE
     Indication: Colorectal cancer metastatic
  3. LOSARTAN POTASSIUM [Concomitant]
     Active Substance: LOSARTAN POTASSIUM
     Indication: Product used for unknown indication
  4. AMLODIPINE [Concomitant]
     Active Substance: AMLODIPINE BESYLATE
     Indication: Product used for unknown indication
  5. GABAPENTIN [Concomitant]
     Active Substance: GABAPENTIN
     Indication: Product used for unknown indication
  6. GLIMEPIRIDE [Concomitant]
     Active Substance: GLIMEPIRIDE
     Indication: Product used for unknown indication
  7. IRON [Concomitant]
     Active Substance: IRON
     Indication: Product used for unknown indication
  8. MAGNESIUM [Concomitant]
     Active Substance: MAGNESIUM
     Indication: Product used for unknown indication
  9. METOPROLOL TARTRATE [Concomitant]
     Active Substance: METOPROLOL TARTRATE
     Indication: Product used for unknown indication
     Dosage: POW
  10. OMEPRAZOLE [Concomitant]
     Active Substance: OMEPRAZOLE
     Indication: Product used for unknown indication
  11. TIMOLOL MAL [Concomitant]
     Indication: Product used for unknown indication
     Dosage: SOL
     Route: 047
  12. HERBALS\TURMERIC [Concomitant]
     Active Substance: HERBALS\TURMERIC
     Indication: Product used for unknown indication
  13. VITAMIN B12 [Concomitant]
     Active Substance: CYANOCOBALAMIN
     Indication: Product used for unknown indication
  14. FLUTICASONE PROPIONA [Concomitant]
     Indication: Product used for unknown indication
     Dosage: POW
  15. IPRATROPIUM BROMIDE [Concomitant]
     Active Substance: IPRATROPIUM BROMIDE
     Indication: Product used for unknown indication
     Dosage: POW

REACTIONS (18)
  - Neutropenia [Unknown]
  - Transfusion [Unknown]
  - Red blood cell count decreased [Unknown]
  - Nausea [Unknown]
  - Abdominal pain [Recovering/Resolving]
  - Diarrhoea [Not Recovered/Not Resolved]
  - Decreased appetite [Not Recovered/Not Resolved]
  - Testicular swelling [Recovering/Resolving]
  - Product dose omission in error [Recovered/Resolved]
  - Testicular pain [Not Recovered/Not Resolved]
  - Alopecia [Not Recovered/Not Resolved]
  - Constipation [Unknown]
  - Product distribution issue [Unknown]
  - Therapy interrupted [Unknown]
  - Dry skin [Not Recovered/Not Resolved]
  - Inappropriate schedule of product administration [Unknown]
  - Disease progression [Unknown]
  - Weight decreased [Unknown]
